FAERS Safety Report 11269457 (Version 2)
Quarter: 2015Q3

REPORT INFORMATION
  Report Type: Spontaneous
  Country: US (occurrence: US)
  Receive Date: 20150714
  Receipt Date: 20150720
  Transmission Date: 20151125
  Serious: Yes (Other)
  Sender: FDA-Public Use
  Company Number: US-ROCHE-1607091

PATIENT
  Age: 44 Year
  Sex: Female

DRUGS (9)
  1. XYZAL [Concomitant]
     Active Substance: LEVOCETIRIZINE DIHYDROCHLORIDE
     Indication: URTICARIA
     Dosage: LAST PRESCRIPTION ON 28/JUN/2014
     Route: 048
     Dates: start: 20101027
  2. XOLAIR [Suspect]
     Active Substance: OMALIZUMAB
     Indication: URTICARIA
     Route: 058
  3. XOLAIR [Suspect]
     Active Substance: OMALIZUMAB
     Route: 058
     Dates: start: 20150624
  4. IMMUNOTHERAPY (TREES AND GRASSES) [Concomitant]
     Dosage: LAST DOSE: 1:1000, 0.3 CC?LAST DOSE GIVEN PRIOR TO ONSET OF EVENT: 05/NOV/2011
     Route: 065
  5. FAMOTIDINE. [Concomitant]
     Active Substance: FAMOTIDINE
     Dosage: LAST PRESCRIPTION 26/SEP/2014
     Route: 048
     Dates: start: 20140926
  6. HYDROXYZINE [Concomitant]
     Active Substance: HYDROXYZINE\HYDROXYZINE HYDROCHLORIDE
     Route: 048
     Dates: end: 201505
  7. HYDROXYZINE [Concomitant]
     Active Substance: HYDROXYZINE\HYDROXYZINE HYDROCHLORIDE
     Indication: URTICARIA
     Dosage: 1 TABLET AT BED AS NEEDED, LAST PRESCRIPTION ON 05/NOV/2014
     Route: 048
     Dates: start: 20101027, end: 20141105
  8. ZYRTEC [Concomitant]
     Active Substance: CETIRIZINE HYDROCHLORIDE
  9. IMMUNOTHERAPY (WEED-DOG 1:1) [Concomitant]
     Dosage: LAST DOSE: 1:1000, 0.3 CC?LAST DOSE GIVEN PRIOR TO ONSET OF EVENT: 05/NOV/2011
     Route: 065

REACTIONS (1)
  - Anaphylactic reaction [Unknown]

NARRATIVE: CASE EVENT DATE: 20150624
